FAERS Safety Report 14389749 (Version 1)
Quarter: 2018Q1

REPORT INFORMATION
  Report Type: Spontaneous
  Country: GB (occurrence: GB)
  Receive Date: 20180115
  Receipt Date: 20180115
  Transmission Date: 20180509
  Serious: Yes (Other)
  Sender: FDA-Public Use
  Company Number: GB-ALLERGAN-1800829US

PATIENT
  Age: 53 Year
  Sex: Male

DRUGS (1)
  1. OZURDEX [Suspect]
     Active Substance: DEXAMETHASONE
     Indication: CYSTOID MACULAR OEDEMA
     Dosage: .7 MG, SINGLE
     Route: 031

REACTIONS (4)
  - Visual impairment [Unknown]
  - Device dislocation [Recovered/Resolved]
  - Pseudophakic bullous keratopathy [Unknown]
  - Transplant failure [Recovered/Resolved]
